FAERS Safety Report 8112300-2 (Version None)
Quarter: 2012Q1

REPORT INFORMATION
  Report Type: 
  Country: None (occurrence: None)
  Receive Date: 20120203
  Receipt Date: 20120203
  Transmission Date: 20120608
  Serious: Yes (Other)
  Sender: FDA-Public Use
  Company Number: None

PATIENT
  Sex: Female
  Weight: 68.038 kg

DRUGS (2)
  1. GABAPENTIN [Suspect]
     Indication: TRIGEMINAL NEURALGIA
     Dosage: 300 MG
     Route: 048
     Dates: start: 20111101, end: 20120102
  2. GABAPENTIN [Suspect]
     Indication: FACIAL PAIN
     Dosage: 300 MG
     Route: 048
     Dates: start: 20111101, end: 20120102

REACTIONS (6)
  - PRODUCT SUBSTITUTION ISSUE [None]
  - NAUSEA [None]
  - VERTIGO [None]
  - FATIGUE [None]
  - SOMNOLENCE [None]
  - ASTHENIA [None]
